FAERS Safety Report 9866997 (Version 1)
Quarter: 2014Q1

REPORT INFORMATION
  Report Type: Spontaneous
  Country: US (occurrence: None)
  Receive Date: 20140131
  Receipt Date: 20140131
  Transmission Date: 20141002
  Serious: Yes (Other)
  Sender: FDA-Public Use
  Company Number: 2014P1000557

PATIENT
  Age: 47 Year
  Sex: Male

DRUGS (14)
  1. FENTANYL [Suspect]
     Indication: INDUCTION OF ANAESTHESIA
     Dosage: ;X1;
  2. FENTANYL [Suspect]
     Indication: PAIN
     Dosage: ;X1;
  3. ONDANSETRON [Suspect]
     Dosage: 4 MG;X1
  4. DULOXETINE [Suspect]
     Indication: DEPRESSION
     Dosage: 120 MG; QD
  5. TRAZODONE [Suspect]
     Indication: DEPRESSION
     Dosage: 100 MG;HS
  6. GABAPENTIN [Concomitant]
  7. MIDAZOLAM [Concomitant]
  8. PROPOFOL [Concomitant]
  9. SUCCINYLCHOLINE [Concomitant]
  10. DESFLURANE [Concomitant]
  11. VECURONIUM [Concomitant]
  12. KETAMINE [Concomitant]
  13. GLYCOPYRROLATE [Concomitant]
  14. NEOSTIGMINE [Concomitant]

REACTIONS (18)
  - Urethral repair [None]
  - Blood pressure increased [None]
  - Muscle rigidity [None]
  - Psychomotor hyperactivity [None]
  - Autonomic nervous system imbalance [None]
  - Tachycardia [None]
  - Trismus [None]
  - Tremor [None]
  - Agitation [None]
  - Eye movement disorder [None]
  - Pain [None]
  - Body temperature decreased [None]
  - Confusional state [None]
  - Serotonin syndrome [None]
  - Metabolic acidosis [None]
  - Respiratory acidosis [None]
  - Memory impairment [None]
  - Hypertonia [None]
